FAERS Safety Report 17511086 (Version 9)
Quarter: 2021Q4

REPORT INFORMATION
  Report Type: Report from Study
  Country: US (occurrence: US)
  Receive Date: 20200306
  Receipt Date: 20211006
  Transmission Date: 20220303
  Serious: Yes (Other)
  Sender: FDA-Public Use
  Company Number: US-NOVARTISTESTPH-NVSC2020US063977

PATIENT
  Age: 53 Year
  Sex: Male

DRUGS (2)
  1. MAYZENT [Suspect]
     Active Substance: SIPONIMOD
     Indication: Multiple sclerosis
     Dosage: 2 MG, QD
     Route: 048
     Dates: start: 20191129
  2. MAYZENT [Suspect]
     Active Substance: SIPONIMOD
     Dosage: 2 MG, QD
     Route: 048

REACTIONS (9)
  - Multiple sclerosis [Unknown]
  - Urinary retention [Unknown]
  - Muscular weakness [Unknown]
  - Fine motor skill dysfunction [Unknown]
  - Stress [Unknown]
  - Cough [Unknown]
  - Bladder dysfunction [Unknown]
  - Urinary tract infection [Unknown]
  - Asthenia [Unknown]

NARRATIVE: CASE EVENT DATE: 20200229
